FAERS Safety Report 10085906 (Version 1)
Quarter: 2014Q2

REPORT INFORMATION
  Report Type: Spontaneous
  Country: JP (occurrence: None)
  Receive Date: 20140416
  Receipt Date: 20140416
  Transmission Date: 20141212
  Serious: Yes (Hospitalization, Other)
  Sender: FDA-Public Use
  Company Number: ADR-2010-8630

PATIENT
  Age: 35 Year
  Sex: Female

DRUGS (1)
  1. GABALON [Suspect]
     Indication: MUSCLE SPASTICITY

REACTIONS (5)
  - Pain in extremity [None]
  - Pain in extremity [None]
  - Neck pain [None]
  - Urinary retention [None]
  - Overdose [None]
